FAERS Safety Report 13256294 (Version 1)
Quarter: 2017Q1

REPORT INFORMATION
  Report Type: Spontaneous
  Country: US (occurrence: US)
  Receive Date: 20170221
  Receipt Date: 20170221
  Transmission Date: 20170428
  Serious: Yes (Life-Threatening, Hospitalization)
  Sender: FDA-Public Use
  Company Number: None

PATIENT

DRUGS (1)
  1. PROHANCE [Suspect]
     Active Substance: GADOTERIDOL

REACTIONS (5)
  - Vomiting [None]
  - Urticaria [None]
  - Dysphagia [None]
  - Lip pruritus [None]
  - Nausea [None]

NARRATIVE: CASE EVENT DATE: 20160805
